FAERS Safety Report 4937767-X (Version None)
Quarter: 2006Q1

REPORT INFORMATION
  Report Type: 
  Country: None (occurrence: None)
  Receive Date: 20060306
  Receipt Date: 20060301
  Transmission Date: 20060701
  Serious: Yes (Other)
  Sender: FDA-Public Use
  Company Number: 06011664

PATIENT
  Age: 55 Year
  Sex: Male

DRUGS (1)
  1. CARBAMAZEPINE [Suspect]

REACTIONS (4)
  - DEPRESSION [None]
  - POOR QUALITY DRUG ADMINISTERED [None]
  - SUICIDAL IDEATION [None]
  - SUICIDE ATTEMPT [None]
